FAERS Safety Report 7572828-0 (Version None)
Quarter: 2011Q2

REPORT INFORMATION
  Report Type: 
  Country: None (occurrence: None)
  Receive Date: 20110627
  Receipt Date: 20110624
  Transmission Date: 20111010
  Serious: No
  Sender: FDA-Public Use
  Company Number: US-PFIZER INC-2011141247

PATIENT
  Sex: Female

DRUGS (7)
  1. TRAZODONE [Concomitant]
     Indication: DEPRESSION
     Dosage: 200 MG, DAILY
     Route: 048
  2. VENLAFAXINE HYDROCHLORIDE [Concomitant]
     Indication: DEPRESSION
     Dosage: 300 MG, 2X/DAY
     Route: 048
  3. PANTOPRAZOLE [Concomitant]
     Dosage: 40 MG, DAILY
     Route: 048
  4. KEPPRA [Concomitant]
     Dosage: 1000 MG, 2X/DAY
     Route: 048
  5. SIMVASTATIN [Concomitant]
     Dosage: 5 MG, DAILY
     Route: 048
  6. CHANTIX [Suspect]
     Indication: SMOKING CESSATION THERAPY
     Dosage: 0.5 MG, 1X/DAY
     Route: 048
     Dates: start: 20110101, end: 20110101
  7. CHANTIX [Suspect]
     Dosage: 1 MG, 2X/DAY
     Route: 048
     Dates: start: 20110101

REACTIONS (5)
  - AFFECTIVE DISORDER [None]
  - ABNORMAL DREAMS [None]
  - SLEEP DISORDER [None]
  - MIGRAINE [None]
  - CONSTIPATION [None]
